FAERS Safety Report 13800563 (Version 1)
Quarter: 2017Q3

REPORT INFORMATION
  Report Type: Report from Study
  Country: None (occurrence: DE)
  Receive Date: 20170727
  Receipt Date: 20170727
  Transmission Date: 20171127
  Serious: Yes (Hospitalization)
  Sender: FDA-Public Use
  Company Number: DE-ABBVIE-17K-062-2051314-00

PATIENT
  Age: 70 Year
  Sex: Female

DRUGS (11)
  1. MABTHERA [Concomitant]
     Active Substance: RITUXIMAB
     Dates: start: 200701, end: 200701
  2. MTX [Concomitant]
     Active Substance: METHOTREXATE SODIUM
  3. MABTHERA [Concomitant]
     Active Substance: RITUXIMAB
     Dates: start: 201305, end: 201305
  4. MABTHERA [Concomitant]
     Active Substance: RITUXIMAB
     Indication: PRODUCT USED FOR UNKNOWN INDICATION
     Dates: start: 200401, end: 200401
  5. MABTHERA [Concomitant]
     Active Substance: RITUXIMAB
     Dates: start: 201601, end: 201601
  6. MABTHERA [Concomitant]
     Active Substance: RITUXIMAB
     Dates: start: 201701, end: 201701
  7. MABTHERA [Concomitant]
     Active Substance: RITUXIMAB
     Dates: start: 201004, end: 201004
  8. MABTHERA [Concomitant]
     Active Substance: RITUXIMAB
     Dates: start: 201203, end: 201203
  9. MABTHERA [Concomitant]
     Active Substance: RITUXIMAB
     Dates: start: 201411, end: 201411
  10. MTX [Concomitant]
     Active Substance: METHOTREXATE SODIUM
     Indication: PRODUCT USED FOR UNKNOWN INDICATION
     Dates: start: 200204, end: 200210
  11. HUMIRA [Suspect]
     Active Substance: ADALIMUMAB
     Indication: RHEUMATOID ARTHRITIS
     Route: 058
     Dates: start: 200303, end: 200401

REACTIONS (3)
  - Spinal fusion surgery [Unknown]
  - Spinal column stenosis [Unknown]
  - Intervertebral disc degeneration [Unknown]

NARRATIVE: CASE EVENT DATE: 201404
